FAERS Safety Report 17606839 (Version 1)
Quarter: 2020Q1

REPORT INFORMATION
  Report Type: Spontaneous
  Country: IE (occurrence: IE)
  Receive Date: 20200331
  Receipt Date: 20200331
  Transmission Date: 20200409
  Serious: Yes (Hospitalization, Other)
  Sender: FDA-Public Use
  Company Number: IE-NOVOPROD-716212

PATIENT
  Age: 85 Year
  Sex: Female

DRUGS (2)
  1. NOVOMIX 30 [Suspect]
     Active Substance: INSULIN ASPART
     Dosage: 30 IU, BID (30 UNITS AM AND 30 UNITS PM)
     Route: 065
     Dates: start: 202002
  2. NOVOMIX 30 [Suspect]
     Active Substance: INSULIN ASPART
     Indication: DIABETES MELLITUS
     Dosage: 38 IU, QD (16 IU AM, 22 IU PM)
     Route: 065

REACTIONS (4)
  - Hypoglycaemia [Unknown]
  - Extra dose administered [Unknown]
  - Product label confusion [Unknown]
  - International normalised ratio abnormal [Unknown]

NARRATIVE: CASE EVENT DATE: 202002
